FAERS Safety Report 4385705-3 (Version None)
Quarter: 2004Q2

REPORT INFORMATION
  Report Type: 
  Country: None (occurrence: None)
  Receive Date: 20040625
  Receipt Date: 20040625
  Transmission Date: 20050107
  Serious: No
  Sender: FDA-Public Use
  Company Number: None

PATIENT
  Age: 65 Year
  Sex: Female
  Weight: 44.4525 kg

DRUGS (2)
  1. WARFARIN SODIUM [Suspect]
     Dosage: 10 MG PO
     Route: 048
     Dates: start: 20040407
  2. LOVENOX [Concomitant]

REACTIONS (6)
  - BLOOD MAGNESIUM INCREASED [None]
  - BLOOD PRESSURE IMMEASURABLE [None]
  - DEPRESSED LEVEL OF CONSCIOUSNESS [None]
  - DISORIENTATION [None]
  - LOWER GASTROINTESTINAL HAEMORRHAGE [None]
  - POST PROCEDURAL COMPLICATION [None]
